FAERS Safety Report 5775002-3 (Version None)
Quarter: 2008Q2

REPORT INFORMATION
  Report Type: 
  Country: None (occurrence: None)
  Receive Date: 20080612
  Receipt Date: 20080530
  Transmission Date: 20081010
  Serious: Yes (Hospitalization)
  Sender: FDA-Public Use
  Company Number: 013614

PATIENT
  Age: 66 Year
  Sex: Male

DRUGS (1)
  1. PRIALT [Suspect]
     Indication: PAIN
     Dosage: 0.041 UG, ONCE/HOUR, INTRATHECAL
     Route: 037
     Dates: start: 20080402

REACTIONS (6)
  - CELLULITIS [None]
  - HEADACHE [None]
  - NAUSEA [None]
  - RASH PRURITIC [None]
  - RASH PUSTULAR [None]
  - VOMITING [None]
